FAERS Safety Report 18557037 (Version 4)
Quarter: 2021Q4

REPORT INFORMATION
  Report Type: Spontaneous
  Country: US (occurrence: US)
  Receive Date: 20201129
  Receipt Date: 20211013
  Transmission Date: 20220303
  Serious: Yes (Hospitalization)
  Sender: FDA-Public Use
  Company Number: US-NOVOPROD-768791

PATIENT
  Age: 68 Year
  Sex: Male

DRUGS (2)
  1. NOVOLOG [Suspect]
     Active Substance: INSULIN ASPART
     Indication: Type 2 diabetes mellitus
     Dosage: 12 IU, TID
     Route: 058
     Dates: start: 20090101
  2. LANTUS [Concomitant]
     Active Substance: INSULIN GLARGINE
     Indication: Product used for unknown indication
     Dosage: UNK
     Route: 065
     Dates: start: 20090101

REACTIONS (4)
  - Ischaemic stroke [Recovered/Resolved]
  - Abdominal hernia [Recovered/Resolved]
  - Prostatomegaly [Unknown]
  - Diabetic coma [Recovered/Resolved]

NARRATIVE: CASE EVENT DATE: 20161001
